FAERS Safety Report 5216355-4 (Version None)
Quarter: 2007Q1

REPORT INFORMATION
  Report Type: 
  Country: None (occurrence: None)
  Receive Date: 20061122
  Receipt Date: 20060720
  Transmission Date: 20070707
  Serious: Yes (Other)
  Sender: FDA-Public Use
  Company Number: 2006089656

PATIENT
  Sex: Male

DRUGS (1)
  1. LIPITOR [Suspect]
     Indication: DRUG USE FOR UNKNOWN INDICATION
     Dosage: 10 MG (10 MG, 1 IN 1 D)
     Dates: start: 20040401

REACTIONS (3)
  - AMNESIA [None]
  - DEPRESSION [None]
  - NEUROPATHY PERIPHERAL [None]
